FAERS Safety Report 14947861 (Version 2)
Quarter: 2018Q2

REPORT INFORMATION
  Report Type: Spontaneous
  Country: HR (occurrence: HR)
  Receive Date: 20180529
  Receipt Date: 20180621
  Transmission Date: 20180711
  Serious: Yes (Hospitalization)
  Sender: FDA-Public Use
  Company Number: HR-TEVA-2018-HR-899277

PATIENT

DRUGS (4)
  1. ETOPOSIDE. [Suspect]
     Active Substance: ETOPOSIDE
     Indication: PRODUCT USED FOR UNKNOWN INDICATION
     Route: 065
  2. VITAMIN D [Suspect]
     Active Substance: CHOLECALCIFEROL
     Indication: PRODUCT USED FOR UNKNOWN INDICATION
     Route: 065
  3. ESTRAMUSTINE [Suspect]
     Active Substance: ESTRAMUSTINE
     Indication: PRODUCT USED FOR UNKNOWN INDICATION
     Dosage: 140 OT, UNK (1X1)
     Route: 065
  4. CALCIUM CARBONATE. [Suspect]
     Active Substance: CALCIUM CARBONATE
     Indication: PRODUCT USED FOR UNKNOWN INDICATION
     Route: 065

REACTIONS (9)
  - Haemorrhagic anaemia [Unknown]
  - Pancytopenia [Unknown]
  - Platelet count decreased [Unknown]
  - Gastrointestinal haemorrhage [Unknown]
  - Bone marrow tumour cell infiltration [Unknown]
  - Laceration [Unknown]
  - Constipation [Unknown]
  - Anal fissure [Unknown]
  - Haemorrhoids [Unknown]
